FAERS Safety Report 6321561-1 (Version None)
Quarter: 2009Q3

REPORT INFORMATION
  Report Type: 
  Country: None (occurrence: None)
  Receive Date: 20090821
  Receipt Date: 20090821
  Transmission Date: 20100115
  Serious: Yes (Other)
  Sender: FDA-Public Use
  Company Number: None

PATIENT
  Age: 53 Year
  Sex: Female
  Weight: 111.1313 kg

DRUGS (1)
  1. ZICAM ZICAM,LLP/ MATRIX INTIATIVES, INC [Suspect]
     Indication: NASOPHARYNGITIS
     Dosage: 1 SWAB TWICE@DAY NASAL
     Route: 045
     Dates: start: 20070101, end: 20080101

REACTIONS (2)
  - AGEUSIA [None]
  - ANOSMIA [None]
